FAERS Safety Report 8361428-0 (Version None)
Quarter: 2012Q2

REPORT INFORMATION
  Report Type: 
  Country: None (occurrence: None)
  Receive Date: 20120515
  Receipt Date: 20110829
  Transmission Date: 20120825
  Serious: Yes (Hospitalization)
  Sender: FDA-Public Use
  Company Number: US-ALEXION-A201101319

PATIENT
  Sex: Female

DRUGS (11)
  1. SOLIRIS [Suspect]
     Indication: PAROXYSMAL NOCTURNAL HAEMOGLOBINURIA
     Dosage: 600 MG, QW
     Route: 042
     Dates: start: 20090323
  2. DEMADEX [Concomitant]
  3. METOPROLOL TARTRATE [Concomitant]
  4. SOLIRIS [Suspect]
     Dosage: 900 MG, Q2W
     Route: 042
     Dates: end: 20100601
  5. GLIPIZIDE [Concomitant]
  6. GABAPENTIN [Concomitant]
  7. DIGOXIN [Concomitant]
  8. POTASSIUM CHLORIDE [Concomitant]
  9. PREDNISONE TAB [Concomitant]
  10. LIPITOR [Concomitant]
  11. NEXIUM [Concomitant]

REACTIONS (1)
  - CEREBROVASCULAR ACCIDENT [None]
